FAERS Safety Report 5356297-7 (Version None)
Quarter: 2007Q2

REPORT INFORMATION
  Report Type: 
  Country: None (occurrence: None)
  Receive Date: 20070530
  Receipt Date: 20070116
  Transmission Date: 20071010
  Serious: Yes (Hospitalization, Other)
  Sender: FDA-Public Use
  Company Number: US200609003759

PATIENT
  Age: 29 Year
  Sex: Female
  Weight: 88.4 kg

DRUGS (10)
  1. ZYPREXA [Suspect]
     Indication: BIPOLAR DISORDER
     Dosage: DAILY (1/D), ORAL
     Route: 048
     Dates: start: 20020101, end: 20050101
  2. ARIPIPRAZOLE [Concomitant]
  3. QUETIAPINE FUMARATE [Concomitant]
  4. RISPERIDONE [Concomitant]
  5. ZIPRASIDONE HCL [Concomitant]
  6. DIVALPROEX SODIUM [Concomitant]
  7. MIRTAZAPINE [Concomitant]
  8. PAROXETINE HCL [Concomitant]
  9. SERTRALINE [Concomitant]
  10. VENLAFAXINE HCL [Concomitant]

REACTIONS (2)
  - DRUG EXPOSURE DURING PREGNANCY [None]
  - PANCREATITIS [None]
